FAERS Safety Report 11805898 (Version 1)
Quarter: 2015Q4

REPORT INFORMATION
  Report Type: Spontaneous
  Country: US (occurrence: US)
  Receive Date: 20151207
  Receipt Date: 20151207
  Transmission Date: 20160305
  Serious: Yes (Hospitalization, Other)
  Sender: FDA-Public Use
  Company Number: US-AUROBINDO-AUR-APL-2015-11036

PATIENT
  Age: 49 Year
  Sex: Female

DRUGS (1)
  1. CIPROFLOXACIN. [Suspect]
     Active Substance: CIPROFLOXACIN
     Indication: URINARY TRACT INFECTION
     Route: 065

REACTIONS (13)
  - Thrombotic thrombocytopenic purpura [Unknown]
  - Thrombocytopenia [Recovered/Resolved]
  - Vomiting [Unknown]
  - Blood lactate dehydrogenase increased [Recovered/Resolved]
  - Nausea [Unknown]
  - Chills [Unknown]
  - Mental status changes [Unknown]
  - Confusional state [Unknown]
  - Haptoglobin decreased [Unknown]
  - Anaemia [Recovered/Resolved]
  - Abdominal pain [Unknown]
  - Pyrexia [Unknown]
  - Schistocytosis [Unknown]
